FAERS Safety Report 6543152-X (Version None)
Quarter: 2010Q1

REPORT INFORMATION
  Report Type: 
  Country: None (occurrence: None)
  Receive Date: 20100120
  Receipt Date: 20100111
  Transmission Date: 20100710
  Serious: Yes (Hospitalization)
  Sender: FDA-Public Use
  Company Number: DE-AMGEN-US385479

PATIENT
  Age: 75 Year
  Sex: Male

DRUGS (2)
  1. ENBREL [Suspect]
     Indication: ANKYLOSING SPONDYLITIS
     Route: 058
     Dates: start: 20050705, end: 20090101
  2. ENBREL [Suspect]
     Route: 058
     Dates: start: 20091201

REACTIONS (2)
  - ARTHRODESIS [None]
  - TENDON RUPTURE [None]
